FAERS Safety Report 7374602-7 (Version None)
Quarter: 2011Q1

REPORT INFORMATION
  Report Type: 
  Country: None (occurrence: None)
  Receive Date: 20110325
  Receipt Date: 20100422
  Transmission Date: 20110831
  Serious: No
  Sender: FDA-Public Use
  Company Number: US-MYLANLABS-2010S1007228

PATIENT
  Sex: Female
  Weight: 101.15 kg

DRUGS (5)
  1. FENTANYL-100 [Suspect]
     Dosage: CHANGED Q72H
     Route: 062
  2. BUPROPION HYDROCHLORIDE [Concomitant]
     Indication: DEPRESSION
     Route: 048
  3. PERCOCET [Concomitant]
     Indication: BREAKTHROUGH PAIN
     Dosage: 10MG/325MG
     Route: 048
  4. FENTANYL-100 [Suspect]
     Indication: BACK PAIN
     Dosage: CHANGED Q72H
     Route: 062
  5. CLONAZEPAM [Concomitant]
     Indication: ANXIETY
     Dosage: FOR ANXIETY AND SEIZURE
     Route: 048

REACTIONS (1)
  - DRUG SCREEN FALSE POSITIVE [None]
